FAERS Safety Report 8239584-4 (Version None)
Quarter: 2012Q1

REPORT INFORMATION
  Report Type: 
  Country: None (occurrence: None)
  Receive Date: 20120326
  Receipt Date: 20120315
  Transmission Date: 20120608
  Serious: Yes (Other)
  Sender: FDA-Public Use
  Company Number: 1228516

PATIENT
  Age: 66 Year
  Sex: Female
  Weight: 58 kg

DRUGS (1)
  1. PACLITAXEL [Suspect]
     Indication: PRODUCT USED FOR UNKNOWN INDICATION
     Dosage: 280- MG MILLIGRAM(S), INTRAVENOUS DRIP
     Route: 041
     Dates: start: 20120127, end: 20120127

REACTIONS (4)
  - FLUSHING [None]
  - BACK PAIN [None]
  - RESTLESSNESS [None]
  - CHEST DISCOMFORT [None]
